FAERS Safety Report 13211209 (Version 1)
Quarter: 2017Q1

REPORT INFORMATION
  Report Type: Spontaneous
  Country: US (occurrence: US)
  Receive Date: 20170210
  Receipt Date: 20170210
  Transmission Date: 20170428
  Serious: No
  Sender: FDA-Public Use
  Company Number: None

PATIENT
  Age: 74 Year
  Sex: Male
  Weight: 87.5 kg

DRUGS (1)
  1. LENVIMA [Suspect]
     Active Substance: LENVATINIB

REACTIONS (1)
  - Proteinuria [None]
